FAERS Safety Report 8133197-0 (Version None)
Quarter: 2012Q1

REPORT INFORMATION
  Report Type: 
  Country: None (occurrence: None)
  Receive Date: 20120213
  Receipt Date: 20120206
  Transmission Date: 20120608
  Serious: Yes (Other)
  Sender: FDA-Public Use
  Company Number: PHHY2011NL109944

PATIENT
  Sex: Female

DRUGS (5)
  1. ZOMETA [Suspect]
     Dosage: 4 MG/ 5 ML PER 28 DAYS
     Dates: start: 20111216
  2. FEMARA [Suspect]
  3. ZOMETA [Suspect]
     Indication: BREAST CANCER METASTATIC
     Dosage: 4 MG/ 5 ML PER 28 DAYS
     Route: 042
     Dates: start: 20100426
  4. ZOMETA [Suspect]
     Dosage: 4 MG/ 5 ML PER 28 DAYS
     Dates: start: 20111101
  5. ZOMETA [Suspect]
     Dosage: 4MG/100ML ONCE PER 28 DAYS
     Route: 042
     Dates: start: 20120206

REACTIONS (4)
  - CARBOHYDRATE ANTIGEN 125 INCREASED [None]
  - NEOPLASM PROGRESSION [None]
  - NEOPLASM MALIGNANT [None]
  - TUMOUR MARKER INCREASED [None]
